FAERS Safety Report 9362903 (Version 1)
Quarter: 2013Q2

REPORT INFORMATION
  Report Type: Report from Study
  Country: AU (occurrence: AU)
  Receive Date: 20130624
  Receipt Date: 20130624
  Transmission Date: 20140414
  Serious: Yes (Death, Hospitalization)
  Sender: FDA-Public Use
  Company Number: AU-ROCHE-1240297

PATIENT
  Age: 71 Year
  Sex: Female
  Weight: 70 kg

DRUGS (13)
  1. RANIBIZUMAB [Suspect]
     Indication: AGE-RELATED MACULAR DEGENERATION
     Route: 050
     Dates: start: 20080311
  2. RANIBIZUMAB [Suspect]
     Route: 050
     Dates: start: 20080506
  3. RANIBIZUMAB [Suspect]
     Route: 050
     Dates: start: 20091209
  4. RANIBIZUMAB [Suspect]
     Route: 050
     Dates: start: 20121031
  5. IRBESARTAN [Concomitant]
  6. NIFEDIPINE [Concomitant]
  7. ESOMEPRAZOLE [Concomitant]
  8. SIMVASTATIN [Concomitant]
  9. PREGABALIN [Concomitant]
  10. SERTRALINE [Concomitant]
  11. VALIUM [Concomitant]
     Route: 065
  12. AVASTIN [Concomitant]
     Route: 065
     Dates: start: 20061114
  13. AVASTIN [Concomitant]
     Route: 065
     Dates: start: 20070213

REACTIONS (2)
  - Death [Fatal]
  - Chest pain [Unknown]
